FAERS Safety Report 13696722 (Version 1)
Quarter: 2017Q2

REPORT INFORMATION
  Report Type: Spontaneous
  Country: US (occurrence: US)
  Receive Date: 20170627
  Receipt Date: 20170627
  Transmission Date: 20170830
  Serious: Yes (Hospitalization)
  Sender: FDA-Public Use
  Company Number: None

PATIENT
  Age: 74 Year
  Sex: Male

DRUGS (1)
  1. CEFTRIAXONE. [Suspect]
     Active Substance: CEFTRIAXONE
     Indication: VASCULAR OPERATION
     Route: 042
     Dates: start: 20170315, end: 20170315

REACTIONS (5)
  - Rash [None]
  - Hypotension [None]
  - Tachycardia [None]
  - Hypersensitivity [None]
  - Anaphylactic reaction [None]

NARRATIVE: CASE EVENT DATE: 20170407
